FAERS Safety Report 23416244 (Version 3)
Quarter: 2024Q2

REPORT INFORMATION
  Report Type: Spontaneous
  Country: US (occurrence: US)
  Receive Date: 20240118
  Receipt Date: 20240416
  Transmission Date: 20240716
  Serious: Yes (Other)
  Sender: FDA-Public Use
  Company Number: US-ABBVIE-5587526

PATIENT
  Sex: Male

DRUGS (2)
  1. LUPRON [Suspect]
     Active Substance: LEUPROLIDE ACETATE
     Indication: Product used for unknown indication
     Route: 065
  2. XTANDI [Suspect]
     Active Substance: ENZALUTAMIDE
     Indication: Product used for unknown indication
     Route: 065

REACTIONS (9)
  - Surgery [Unknown]
  - Hot flush [Unknown]
  - Muscle atrophy [Unknown]
  - Exercise tolerance decreased [Unknown]
  - Fat redistribution [Recovered/Resolved]
  - Libido disorder [Unknown]
  - Ejaculation failure [Unknown]
  - Post procedural complication [Unknown]
  - Micturition disorder [Unknown]
